FAERS Safety Report 9670061 (Version 3)
Quarter: 2013Q4

REPORT INFORMATION
  Report Type: Not Available
  Country: AU (occurrence: AU)
  Receive Date: 20131105
  Receipt Date: 20131126
  Transmission Date: 20140711
  Serious: Yes (Other)
  Sender: FDA-Public Use
  Company Number: AU-PURDUE-USA-2013-0108185

PATIENT
  Sex: Female

DRUGS (2)
  1. MORPHINE SULFATE (SIMILAR TO NDA 19-516) [Suspect]
     Indication: PRODUCT USED FOR UNKNOWN INDICATION
     Dosage: UNKNOWN
     Route: 065
  2. BACLOFEN [Suspect]
     Indication: PRODUCT USED FOR UNKNOWN INDICATION
     Dosage: 400 MCG, DAILY
     Route: 037

REACTIONS (7)
  - Device dislocation [Recovering/Resolving]
  - Spinal cord compression [Recovering/Resolving]
  - Gait disturbance [Recovering/Resolving]
  - Respiratory disorder [Recovering/Resolving]
  - Performance status decreased [Recovering/Resolving]
  - Abasia [Recovering/Resolving]
  - Muscle spasticity [Recovering/Resolving]
